FAERS Safety Report 10133977 (Version 1)
Quarter: 2014Q2

REPORT INFORMATION
  Report Type: Spontaneous
  Country: FR (occurrence: FR)
  Receive Date: 20140428
  Receipt Date: 20140428
  Transmission Date: 20141212
  Serious: Yes (Hospitalization)
  Sender: FDA-Public Use
  Company Number: PHHY2014FR047945

PATIENT
  Age: 77 Year
  Sex: Male

DRUGS (10)
  1. LOXEN LP [Suspect]
     Dosage: 50 MG, UNK
     Route: 048
  2. ATENOLOL [Suspect]
     Dosage: 50 MG, DAILY
     Route: 048
  3. FUROSEMIDE [Suspect]
     Dosage: 40 MG, DAILY
  4. CORDARONE [Suspect]
     Dosage: 200 MG, UNK
     Route: 048
     Dates: start: 201009
  5. PLAVIX [Suspect]
     Dosage: 75 MG, UNK
     Route: 048
     Dates: start: 2009
  6. ZYLORIC [Suspect]
     Dosage: 100 MG, UNK
     Route: 048
  7. INIPOMP [Suspect]
     Dosage: 20 MG, UNK
     Route: 048
  8. KARDEGIC [Suspect]
     Dosage: 75 MG, UNK
     Route: 048
  9. DIAMICRON [Suspect]
     Dosage: 30 MG, UNK
     Route: 048
  10. DIFFU K [Concomitant]

REACTIONS (2)
  - Interstitial lung disease [Unknown]
  - Pulmonary fibrosis [Unknown]
